FAERS Safety Report 12085094 (Version 1)
Quarter: 2016Q1

REPORT INFORMATION
  Report Type: Spontaneous
  Country: DE (occurrence: DE)
  Receive Date: 20160217
  Receipt Date: 20160217
  Transmission Date: 20160526
  Serious: Yes (Other)
  Sender: FDA-Public Use
  Company Number: DE-OTSUKA-2016_003631

PATIENT
  Sex: Male

DRUGS (2)
  1. PLETAL [Suspect]
     Active Substance: CILOSTAZOL
     Indication: STENT PLACEMENT
     Dosage: UNK
     Route: 065
  2. BRILIQUE [Concomitant]
     Active Substance: TICAGRELOR
     Indication: STENT PLACEMENT
     Route: 065

REACTIONS (1)
  - Urinary bladder haemorrhage [Recovered/Resolved]
